FAERS Safety Report 5000273-0 (Version None)
Quarter: 2006Q2

REPORT INFORMATION
  Report Type: 
  Country: None (occurrence: None)
  Receive Date: 20060511
  Receipt Date: 20051004
  Transmission Date: 20061013
  Serious: Yes (Death, Hospitalization, Other)
  Sender: FDA-Public Use
  Company Number: US-MERCK-0510USA02623

PATIENT
  Age: 68 Year
  Sex: Female
  Weight: 73 kg

DRUGS (2)
  1. VIOXX [Suspect]
     Indication: ARTHRITIS
     Route: 048
     Dates: start: 20000426, end: 20001101
  2. VIOXX [Suspect]
     Indication: PAIN MANAGEMENT
     Route: 048
     Dates: start: 20000426, end: 20001101

REACTIONS (25)
  - AORTIC ANEURYSM [None]
  - ARTERIOSCLEROSIS [None]
  - ATRIAL FIBRILLATION [None]
  - BLOOD ALKALINE PHOSPHATASE INCREASED [None]
  - BLUE TOE SYNDROME [None]
  - CARDIOVASCULAR DISORDER [None]
  - CONVULSION [None]
  - CORONARY ARTERY DISEASE [None]
  - DEPRESSION [None]
  - DUODENAL ULCER [None]
  - DYSPNOEA [None]
  - EXTREMITY NECROSIS [None]
  - FACIAL NEURALGIA [None]
  - GANGRENE [None]
  - GASTRITIS HAEMORRHAGIC [None]
  - ISCHAEMIC STROKE [None]
  - LOSS OF CONSCIOUSNESS [None]
  - MYOCARDIAL INFARCTION [None]
  - NAUSEA [None]
  - OESOPHAGITIS ULCERATIVE [None]
  - PERIPHERAL ARTERIAL OCCLUSIVE DISEASE [None]
  - PROCEDURAL PAIN [None]
  - REVERSIBLE ISCHAEMIC NEUROLOGICAL DEFICIT [None]
  - TOE AMPUTATION [None]
  - VOMITING [None]
